FAERS Safety Report 4654886-6 (Version None)
Quarter: 2005Q2

REPORT INFORMATION
  Report Type: 
  Country: None (occurrence: None)
  Receive Date: 20050506
  Receipt Date: 20050428
  Transmission Date: 20051028
  Serious: Yes (Other)
  Sender: FDA-Public Use
  Company Number: GB-MERCK-0505GBR00003

PATIENT
  Age: 50 Year
  Sex: Female
  Weight: 96 kg

DRUGS (14)
  1. ZETIA [Suspect]
     Indication: HYPERCHOLESTEROLAEMIA
     Route: 048
     Dates: start: 20050408, end: 20050414
  2. CLOTRIMAZOLE [Concomitant]
     Route: 065
  3. AMLODIPINE BESYLATE [Concomitant]
     Route: 065
  4. ROSIGLITAZONE MALEATE [Concomitant]
     Route: 065
  5. ASPIRIN [Concomitant]
     Route: 065
  6. SPIRONOLACTONE [Concomitant]
     Route: 065
  7. ISOSORBIDE MONONITRATE [Concomitant]
     Route: 065
  8. ATENOLOL [Concomitant]
     Route: 065
  9. DOXAZOSIN MESYLATE [Concomitant]
     Route: 065
  10. BENDROFLUMETHIAZIDE [Concomitant]
     Route: 065
  11. VALSARTAN [Concomitant]
     Route: 065
  12. NICORANDIL [Concomitant]
     Route: 065
  13. CLOBETASONE BUTYRATE AND NYSTATIN AND OXYTETRACYCLINE CALCIUM [Concomitant]
     Route: 065
  14. ROSUVASTATIN CALCIUM [Concomitant]
     Route: 065

REACTIONS (4)
  - ASTHENIA [None]
  - BLOOD PRESSURE INCREASED [None]
  - DIZZINESS [None]
  - HYPOTENSION [None]
